FAERS Safety Report 21544197 (Version 1)
Quarter: 2022Q4

REPORT INFORMATION
  Report Type: Spontaneous
  Country: PT (occurrence: PT)
  Receive Date: 20221102
  Receipt Date: 20221102
  Transmission Date: 20230113
  Serious: Yes (Hospitalization, Other)
  Sender: FDA-Public Use
  Company Number: PT-FreseniusKabi-FK202214570

PATIENT
  Age: 63 Year
  Sex: Male

DRUGS (2)
  1. PACLITAXEL [Suspect]
     Active Substance: PACLITAXEL
     Indication: Lung carcinoma cell type unspecified stage IV
     Dosage: (175 MG/M2 OF 3/3WKS).
  2. TOPOTECAN [Suspect]
     Active Substance: TOPOTECAN HYDROCHLORIDE
     Indication: Lung carcinoma cell type unspecified stage IV
     Dosage: HE UNDERWENT 2ND LINE OF TREATMENT WITH TOPOTECAN.

REACTIONS (4)
  - Hypersensitivity pneumonitis [Recovering/Resolving]
  - Respiratory failure [Unknown]
  - Myalgia [Unknown]
  - Pyrexia [Unknown]
